FAERS Safety Report 11272617 (Version 1)
Quarter: 2015Q3

REPORT INFORMATION
  Report Type: Report from Study
  Country: CN (occurrence: CN)
  Receive Date: 20150715
  Receipt Date: 20150715
  Transmission Date: 20151125
  Serious: Yes (Other)
  Sender: FDA-Public Use
  Company Number: CN-ASTELLAS-2014US021376

PATIENT
  Age: 62 Year
  Sex: Male

DRUGS (1)
  1. ERLOTINIB [Suspect]
     Active Substance: ERLOTINIB
     Indication: NON-SMALL CELL LUNG CANCER
     Route: 048
     Dates: start: 20140807

REACTIONS (3)
  - Fall [Unknown]
  - Fracture [Unknown]
  - Acne [Recovered/Resolved]

NARRATIVE: CASE EVENT DATE: 20140812
